FAERS Safety Report 8184471-3 (Version None)
Quarter: 2012Q1

REPORT INFORMATION
  Report Type: 
  Country: None (occurrence: None)
  Receive Date: 20120301
  Receipt Date: 20120213
  Transmission Date: 20120608
  Serious: Yes (Other)
  Sender: FDA-Public Use
  Company Number: 20120078

PATIENT
  Age: 44 Year
  Sex: Female
  Weight: 64.8644 kg

DRUGS (7)
  1. CALCIUM CARBONATE [Concomitant]
  2. DEXILANT [Concomitant]
  3. NORCO [Concomitant]
  4. SYNTHROID [Concomitant]
  5. VENOFER [Suspect]
     Indication: IRON DEFICIENCY
     Dosage: 200 MG WEEKLY X 5
     Dates: start: 20111201, end: 20120101
  6. CALCIUM [Concomitant]
  7. ROCALTROL [Concomitant]

REACTIONS (3)
  - ABDOMINAL PAIN [None]
  - ALANINE AMINOTRANSFERASE INCREASED [None]
  - ASPARTATE AMINOTRANSFERASE DECREASED [None]
